FAERS Safety Report 6765153-9 (Version None)
Quarter: 2010Q2

REPORT INFORMATION
  Report Type: 
  Country: None (occurrence: None)
  Receive Date: 20100610
  Receipt Date: 20100610
  Transmission Date: 20101027
  Serious: Yes (Disabling, Other)
  Sender: FDA-Public Use
  Company Number: None

PATIENT
  Age: 55 Year
  Sex: Male
  Weight: 98.4306 kg

DRUGS (1)
  1. ACTONEL [Suspect]
     Indication: OSTEOPOROSIS
     Dosage: 1 PILL @ 150 MG 1X PER MONTH ORAL
     Route: 048
     Dates: start: 20100507

REACTIONS (19)
  - ABDOMINAL DISTENSION [None]
  - ARTHRALGIA [None]
  - BONE PAIN [None]
  - CHEST PAIN [None]
  - DYSPEPSIA [None]
  - DYSPNOEA [None]
  - INCREASED VISCOSITY OF BRONCHIAL SECRETION [None]
  - INFLUENZA [None]
  - MYALGIA [None]
  - OCULAR HYPERAEMIA [None]
  - ODYNOPHAGIA [None]
  - OESOPHAGEAL DISORDER [None]
  - PAIN [None]
  - PAIN IN JAW [None]
  - PHOTOPHOBIA [None]
  - RASH [None]
  - SPUTUM DISCOLOURED [None]
  - SWELLING [None]
  - WEIGHT DECREASED [None]
